FAERS Safety Report 5436985-4 (Version None)
Quarter: 2007Q3

REPORT INFORMATION
  Report Type: 
  Country: None (occurrence: None)
  Receive Date: 20070831
  Receipt Date: 20070822
  Transmission Date: 20080115
  Serious: No
  Sender: FDA-Public Use
  Company Number: A0672820A

PATIENT

DRUGS (2)
  1. ALLI [Suspect]
     Indication: DRUG USE FOR UNKNOWN INDICATION
     Dates: start: 20070702
  2. MULTI-VITAMIN [Suspect]

REACTIONS (3)
  - FLUID RETENTION [None]
  - GASTROINTESTINAL DISORDER [None]
  - NAUSEA [None]
